FAERS Safety Report 18805036 (Version 2)
Quarter: 2021Q1

REPORT INFORMATION
  Report Type: Spontaneous
  Country: GR (occurrence: GR)
  Receive Date: 20210129
  Receipt Date: 20210310
  Transmission Date: 20210419
  Serious: Yes (Other)
  Sender: FDA-Public Use
  Company Number: GR-CELLTRION INC.-2020GR034752

PATIENT

DRUGS (1)
  1. INFLECTRA [Suspect]
     Active Substance: INFLIXIMAB-DYYB
     Indication: ANKYLOSING SPONDYLITIS
     Dosage: 3 VIALS / 5 WEEKS
     Route: 042
     Dates: start: 2018, end: 202012

REACTIONS (2)
  - Off label use [Unknown]
  - Systemic lupus erythematosus [Not Recovered/Not Resolved]
